FAERS Safety Report 5282193-X (Version None)
Quarter: 2007Q1

REPORT INFORMATION
  Report Type: 
  Country: None (occurrence: None)
  Receive Date: 20070330
  Receipt Date: 20070319
  Transmission Date: 20070707
  Serious: Yes (Hospitalization, Other)
  Sender: FDA-Public Use
  Company Number: BR-PFIZER INC-2007015242

PATIENT
  Sex: Female

DRUGS (2)
  1. DEPO-PROVERA [Suspect]
     Indication: CONTRACEPTION
     Route: 030
     Dates: start: 20040101, end: 20040101
  2. DEPO-PROVERA [Suspect]
     Indication: MENSTRUAL DISCOMFORT
     Route: 030
     Dates: start: 20070128, end: 20070128

REACTIONS (4)
  - METRORRHAGIA [None]
  - ROAD TRAFFIC ACCIDENT [None]
  - SOMNOLENCE [None]
  - UPPER LIMB FRACTURE [None]
